FAERS Safety Report 9513730 (Version 1)
Quarter: 2013Q1

REPORT INFORMATION
  Report Type: Spontaneous
  Country: US (occurrence: None)
  Receive Date: 20130305
  Receipt Date: 20130305
  Transmission Date: 20140127
  Serious: Yes (Other)
  Sender: FDA-Public Use
  Company Number: 163-21880-12102266

PATIENT
  Age: 45 Year
  Sex: Female

DRUGS (6)
  1. REVLIMID (LENALIDOMIDE) (15 MILLIGRAM, CAPSULES) [Suspect]
     Indication: PLASMA CELL MYELOMA
     Dosage: 15 MG, 1 IN 1 D, PO
     Route: 048
     Dates: start: 20091222
  2. ACYCLOVIR (ACICLOVIR) (UNKNOWN) [Concomitant]
  3. ASPIRIN (ACETYLSALICYLIC ACID) (UNKNOWN) (ACETYLSALICYLIC ACID) [Concomitant]
  4. CALCIUM + D (OS-CAL) (UNKNOWN) [Concomitant]
  5. PREVACID (LANSOPRAZOLE) (UNKNOWN) [Concomitant]
  6. VALIUM (DIAZEPAM) (UNKNOWN) [Concomitant]

REACTIONS (1)
  - Cough [None]
